FAERS Safety Report 10178667 (Version 3)
Quarter: 2014Q2

REPORT INFORMATION
  Report Type: Report from Study
  Country: AT (occurrence: AT)
  Receive Date: 20140519
  Receipt Date: 20140604
  Transmission Date: 20141212
  Serious: Yes (Hospitalization)
  Sender: FDA-Public Use
  Company Number: AT-TEVA-482309USA

PATIENT
  Age: 62 Year
  Sex: Male

DRUGS (12)
  1. BENDAMUSTINE [Suspect]
     Indication: MANTLE CELL LYMPHOMA
     Dosage: 3.2143 MG/M2 DAILY; 10 MG, EVERY 4 WEEKS
     Route: 042
     Dates: start: 20140417, end: 20140418
  2. BENDAMUSTINE [Suspect]
     Route: 042
     Dates: start: 20140418
  3. BENDAMUSTINE [Suspect]
     Route: 042
     Dates: start: 20140419
  4. MABTHERA [Suspect]
     Indication: MANTLE CELL LYMPHOMA
     Route: 042
     Dates: start: 20140417, end: 20140417
  5. VOLTAREN                           /00372301/ [Concomitant]
     Indication: PAIN
     Dosage: UNK UNK, THRICE DAILY
     Route: 048
  6. TOBRADEX [Concomitant]
     Indication: DRY EYE
     Dosage: UNK UNK, THRICE DAILY
     Route: 048
  7. CITALOPRAM [Concomitant]
     Indication: DEPRESSION
     Route: 048
  8. MOTILIUM                           /00498201/ [Concomitant]
     Indication: PROPHYLAXIS OF NAUSEA AND VOMITING
     Route: 048
     Dates: start: 20140417
  9. TEMESTA                            /00273201/ [Concomitant]
     Indication: ANXIETY
     Route: 048
  10. UROSIN                             /00003301/ [Concomitant]
     Indication: TUMOUR LYSIS SYNDROME
     Route: 048
  11. UROSIN                             /00003301/ [Concomitant]
     Indication: OEDEMA
  12. RATIOGRASTIM [Concomitant]
     Indication: NEUTROPENIA
     Route: 058

REACTIONS (1)
  - Circulatory collapse [Recovered/Resolved]
